FAERS Safety Report 6732366-1 (Version None)
Quarter: 2010Q2

REPORT INFORMATION
  Report Type: 
  Country: None (occurrence: None)
  Receive Date: 20100519
  Receipt Date: 20100512
  Transmission Date: 20101027
  Serious: Yes (Hospitalization, Disabling, Other)
  Sender: FDA-Public Use
  Company Number: US-ROCHE-419589

PATIENT
  Sex: Male
  Weight: 79.4 kg

DRUGS (2)
  1. ACCUTANE [Suspect]
     Indication: ACNE
     Route: 048
     Dates: start: 19911201, end: 19920301
  2. ADVIL [Concomitant]
     Dosage: TAKEN OCCASIONALLY FROM 10 YEARS PRIOR TO ALLEGED ISOTRETINOIN INJURIES THOUGH TO THE PRESENT.

REACTIONS (9)
  - ARTHRITIS [None]
  - COLITIS [None]
  - CROHN'S DISEASE [None]
  - FRACTURE [None]
  - GASTROINTESTINAL DISORDER [None]
  - INFLAMMATORY BOWEL DISEASE [None]
  - INTESTINAL HAEMORRHAGE [None]
  - IRRITABLE BOWEL SYNDROME [None]
  - MULTI-ORGAN DISORDER [None]
